FAERS Safety Report 24365181 (Version 1)
Quarter: 2024Q3

REPORT INFORMATION
  Report Type: Report from Study
  Country: CA (occurrence: CA)
  Receive Date: 20240926
  Receipt Date: 20240926
  Transmission Date: 20241016
  Serious: Yes (Hospitalization, Other)
  Sender: SANDOZ
  Company Number: CA-SANDOZ-SDZ2023CA028290

PATIENT
  Sex: Male

DRUGS (3)
  1. ATORVASTATIN [Suspect]
     Active Substance: ATORVASTATIN
     Dosage: 20 MG
     Route: 065
  2. ATORVASTATIN [Suspect]
     Active Substance: ATORVASTATIN
     Indication: Product used for unknown indication
     Dosage: 40 MG
     Route: 065
  3. HYRIMOZ [Suspect]
     Active Substance: ADALIMUMAB-ADAZ
     Indication: Crohn^s disease
     Dosage: 40 MG, QW
     Route: 058
     Dates: start: 20211210

REACTIONS (14)
  - Cerebrovascular accident [Unknown]
  - Neoplasm malignant [Unknown]
  - Pain in extremity [Unknown]
  - Fatigue [Unknown]
  - Arthralgia [Recovering/Resolving]
  - Abnormal faeces [Unknown]
  - Neck pain [Unknown]
  - Anal haemorrhage [Unknown]
  - Dyschezia [Unknown]
  - Muscular weakness [Unknown]
  - Abdominal pain [Unknown]
  - Headache [Unknown]
  - Alopecia [Unknown]
  - Off label use [Unknown]
